FAERS Safety Report 8403361-1 (Version None)
Quarter: 2012Q2

REPORT INFORMATION
  Report Type: 
  Country: None (occurrence: None)
  Receive Date: 20120601
  Receipt Date: 20120529
  Transmission Date: 20120825
  Serious: No
  Sender: FDA-Public Use
  Company Number: US-PFIZER INC-2012122437

PATIENT
  Sex: Female
  Weight: 59 kg

DRUGS (6)
  1. CYMBALTA [Concomitant]
     Dosage: UNK
  2. NEURONTIN [Suspect]
     Indication: NEURALGIA
     Dosage: 600 MG, 3X/DAY
     Route: 048
     Dates: start: 20120101
  3. FLUOXETINE [Concomitant]
     Indication: DEPRESSION
     Dosage: UNK
  4. CLONAZEPAM [Concomitant]
     Indication: ANXIETY
     Dosage: UNK
  5. VITAMIN B1 TAB [Concomitant]
     Dosage: UNK
  6. FOLIC ACID [Concomitant]
     Dosage: UNK

REACTIONS (5)
  - WHITE BLOOD CELL COUNT INCREASED [None]
  - DRUG INEFFECTIVE [None]
  - HEPATIC ENZYME INCREASED [None]
  - MUSCULOSKELETAL DISORDER [None]
  - RESPIRATORY DISORDER [None]
